FAERS Safety Report 18869160 (Version 1)
Quarter: 2021Q1

REPORT INFORMATION
  Report Type: Spontaneous
  Country: KR (occurrence: KR)
  Receive Date: 20210210
  Receipt Date: 20210210
  Transmission Date: 20210420
  Serious: Yes (Other)
  Sender: FDA-Public Use
  Company Number: KR-009507513-2102KOR002553

PATIENT
  Sex: Male

DRUGS (1)
  1. FINASTERIDE. [Suspect]
     Active Substance: FINASTERIDE
     Indication: ALOPECIA
     Dosage: 1.25 MILLIGRAM (MG), DAILY FOR 122 MONTHS (CUMULATIVE DOSE OF 4637.5 MG)
     Route: 048

REACTIONS (1)
  - Macular hole [Unknown]
